FAERS Safety Report 7548977-X (Version None)
Quarter: 2011Q2

REPORT INFORMATION
  Report Type: 
  Country: None (occurrence: None)
  Receive Date: 20110615
  Receipt Date: 20110603
  Transmission Date: 20111010
  Serious: Yes (Other)
  Sender: FDA-Public Use
  Company Number: US-ROCHE-754762

PATIENT
  Age: 57 Year
  Sex: Male

DRUGS (2)
  1. COUMADIN [Concomitant]
  2. TORADOL [Suspect]
     Route: 065

REACTIONS (2)
  - PULMONARY EMBOLISM [None]
  - SUICIDAL IDEATION [None]
